FAERS Safety Report 12334527 (Version 2)
Quarter: 2016Q3

REPORT INFORMATION
  Report Type: Spontaneous
  Country: US (occurrence: US)
  Receive Date: 20160504
  Receipt Date: 20160803
  Transmission Date: 20161109
  Serious: No
  Sender: FDA-Public Use
  Company Number: US-PFIZER INC-2016238716

PATIENT
  Age: 71 Year
  Sex: Female

DRUGS (2)
  1. LETROZOLE. [Suspect]
     Active Substance: LETROZOLE
     Dosage: UNK
  2. IBRANCE [Suspect]
     Active Substance: PALBOCICLIB
     Dosage: 100 MG
     Dates: start: 20151222

REACTIONS (8)
  - Condition aggravated [Unknown]
  - Abdominal pain upper [Unknown]
  - Anxiety [Unknown]
  - Flatulence [Unknown]
  - White blood cell count decreased [Unknown]
  - Fatigue [Unknown]
  - Myalgia [Unknown]
  - Carpal tunnel syndrome [Unknown]
